FAERS Safety Report 25360073 (Version 2)
Quarter: 2025Q2

REPORT INFORMATION
  Report Type: Report from Study
  Country: US (occurrence: US)
  Receive Date: 20250527
  Receipt Date: 20250603
  Transmission Date: 20250717
  Serious: Yes (Hospitalization)
  Sender: STEMLINE THERAPEUTICS
  Company Number: US-STEMLINE THERAPEUTICS, INC-2025-STML-US001826

PATIENT

DRUGS (2)
  1. ORSERDU [Suspect]
     Active Substance: ELACESTRANT
     Indication: Product used for unknown indication
     Dosage: UNK, DAILY (MG UNITS)
     Route: 065
     Dates: start: 20240817, end: 20250517
  2. ORSERDU [Suspect]
     Active Substance: ELACESTRANT
     Dosage: UNK, DAILY (MG UNITS)
     Route: 065
     Dates: end: 20250522

REACTIONS (4)
  - Thrombosis [Unknown]
  - Dyspnoea [Unknown]
  - Cough [Unknown]
  - Malignant neoplasm progression [Not Recovered/Not Resolved]
